FAERS Safety Report 7669921-0 (Version None)
Quarter: 2011Q3

REPORT INFORMATION
  Report Type: 
  Country: None (occurrence: None)
  Receive Date: 20110808
  Receipt Date: 20110803
  Transmission Date: 20111222
  Serious: Yes (Hospitalization, Other)
  Sender: FDA-Public Use
  Company Number: PHHO2011US10454

PATIENT
  Sex: Female
  Weight: 93.9 kg

DRUGS (18)
  1. VANCOMYCIN [Suspect]
  2. COLACE [Concomitant]
  3. PRILOSEC [Concomitant]
  4. DEXAMETHASONE [Concomitant]
  5. SELENIUM [Concomitant]
  6. CISPLATIN [Suspect]
     Indication: BILE DUCT CANCER
     Dosage: 12.5 MG/M2, DAYS 1+8
     Route: 042
     Dates: start: 20110512, end: 20110623
  7. OXYCODONE HCL [Concomitant]
  8. VITAMIN B6 [Concomitant]
  9. MULTI-VITAMIN [Concomitant]
  10. SENOKOT [Concomitant]
  11. GARLIC [Concomitant]
  12. POLYETHYLENE GLYCOL [Concomitant]
  13. VITAMIN E [Concomitant]
  14. ESTER-C [Concomitant]
  15. FISH OIL [Concomitant]
  16. AFINITOR [Suspect]
     Indication: BILE DUCT CANCER
     Dosage: 5 MG, M-W-F
     Route: 048
     Dates: start: 20110512, end: 20110623
  17. GEMCITABINE [Suspect]
     Indication: BILE DUCT CANCER
     Dosage: 600 MG/M2, DAYS 1+8
     Route: 042
     Dates: start: 20110512, end: 20110623
  18. COMPAZINE [Concomitant]

REACTIONS (25)
  - PORTAL VEIN THROMBOSIS [None]
  - NEUTROPENIA [None]
  - PYREXIA [None]
  - HYPERLIPIDAEMIA [None]
  - ALANINE AMINOTRANSFERASE INCREASED [None]
  - ANAEMIA [None]
  - CHOLANGITIS [None]
  - TACHYCARDIA [None]
  - LUNG INFILTRATION [None]
  - CHOLELITHIASIS [None]
  - CARDIO-RESPIRATORY ARREST [None]
  - DILATATION INTRAHEPATIC DUCT ACQUIRED [None]
  - THROMBOCYTOPENIA [None]
  - DIARRHOEA [None]
  - OCULAR ICTERUS [None]
  - LEUKOPENIA [None]
  - BILIRUBIN CONJUGATED INCREASED [None]
  - FLANK PAIN [None]
  - BLOOD ALKALINE PHOSPHATASE INCREASED [None]
  - ENTEROCOCCAL BACTERAEMIA [None]
  - BLOOD BILIRUBIN ABNORMAL [None]
  - RENAL FAILURE [None]
  - NAUSEA [None]
  - ABDOMINAL PAIN [None]
  - ASPARTATE AMINOTRANSFERASE INCREASED [None]
